FAERS Safety Report 7469340-6 (Version None)
Quarter: 2011Q2

REPORT INFORMATION
  Report Type: 
  Country: None (occurrence: None)
  Receive Date: 20110429
  Receipt Date: 20110415
  Transmission Date: 20111010
  Serious: Yes (Life-Threatening, Hospitalization, Other)
  Sender: FDA-Public Use
  Company Number: 031360

PATIENT
  Age: 25 Year
  Sex: Female
  Weight: 109 kg

DRUGS (4)
  1. LACOSAMIDE [Suspect]
     Dosage: 200 MG
     Dates: start: 20090929
  2. KEPPRA [Suspect]
     Indication: EPILEPSY
     Dosage: 500, 250 MG, ORAL
     Route: 048
     Dates: start: 20090720, end: 20091028
  3. KEPPRA [Suspect]
     Indication: EPILEPSY
     Dosage: 500, 250 MG, ORAL
     Route: 048
     Dates: start: 20081007, end: 20090719
  4. DEPAKOTE ER [Concomitant]

REACTIONS (11)
  - PERSONALITY CHANGE [None]
  - AGGRESSION [None]
  - CRYING [None]
  - SUICIDAL IDEATION [None]
  - CHOLELITHIASIS [None]
  - OVARIAN CYST [None]
  - PERSONALITY DISORDER [None]
  - SCREAMING [None]
  - MOOD ALTERED [None]
  - PSYCHOTIC DISORDER [None]
  - MENTAL DISORDER [None]
